FAERS Safety Report 18355826 (Version 1)
Quarter: 2020Q4

REPORT INFORMATION
  Report Type: Spontaneous
  Country: CA (occurrence: CA)
  Receive Date: 20201007
  Receipt Date: 20201007
  Transmission Date: 20210114
  Serious: Yes (Hospitalization, Other)
  Sender: FDA-Public Use
  Company Number: CA-ADVANZ PHARMA-202009009159

PATIENT

DRUGS (1)
  1. PARNATE,TRANYLCYPROMINE SULFATE (AUTHORIZED GENERIC) [Suspect]
     Active Substance: TRANYLCYPROMINE SULFATE
     Indication: PRODUCT USED FOR UNKNOWN INDICATION
     Dosage: UNK
     Route: 065

REACTIONS (6)
  - Coordination abnormal [Unknown]
  - Diarrhoea [Unknown]
  - Photophobia [Unknown]
  - Muscle twitching [Unknown]
  - Hallucination [Unknown]
  - Product availability issue [Unknown]
